FAERS Safety Report 23345429 (Version 1)
Quarter: 2023Q4

REPORT INFORMATION
  Report Type: Spontaneous
  Country: IT (occurrence: IT)
  Receive Date: 20231228
  Receipt Date: 20231228
  Transmission Date: 20240110
  Serious: Yes (Life-Threatening, Other)
  Sender: FDA-Public Use
  Company Number: None

PATIENT
  Age: 2 Day
  Sex: Female
  Weight: 1.97 kg

DRUGS (6)
  1. DOPAMINE [Suspect]
     Active Substance: DOPAMINE HYDROCHLORIDE
     Indication: Hypotension
     Dosage: 97 MICROGRAM/KILOGRAM
     Route: 042
     Dates: start: 20231031, end: 20231102
  2. AMPICILLIN [Concomitant]
     Active Substance: AMPICILLIN
     Indication: Sepsis
     Dosage: 200 MILLIGRAM, Q12H
     Route: 042
     Dates: start: 20231030, end: 20231104
  3. FENTANYL [Concomitant]
     Active Substance: FENTANYL\FENTANYL CITRATE
     Indication: Infant sedation
     Dosage: 1 MICROGRAM/KILOGRAM
     Route: 042
     Dates: start: 20231030, end: 20231103
  4. NETILMICIN SULFATE [Concomitant]
     Active Substance: NETILMICIN SULFATE
     Indication: Product used for unknown indication
     Dosage: UNK
     Route: 065
  5. SULBACTAM [Concomitant]
     Active Substance: SULBACTAM
     Indication: Product used for unknown indication
     Dosage: UNK
     Route: 065
  6. NETILMICIN SULFATE [Concomitant]
     Active Substance: NETILMICIN SULFATE
     Indication: Sepsis
     Dosage: 6 MILLIGRAM, Q12H
     Route: 042
     Dates: start: 20231030, end: 20231103

REACTIONS (3)
  - Vasoconstriction [Recovered/Resolved]
  - Pallor [Recovered/Resolved]
  - Medication error [Recovered/Resolved]

NARRATIVE: CASE EVENT DATE: 20231101
